FAERS Safety Report 15296066 (Version 1)
Quarter: 2018Q3

REPORT INFORMATION
  Report Type: Spontaneous
  Country: US (occurrence: US)
  Receive Date: 20180820
  Receipt Date: 20180820
  Transmission Date: 20181010
  Serious: No
  Sender: FDA-Public Use
  Company Number: US-PFIZER INC-2018332870

PATIENT
  Age: 16 Year
  Sex: Male

DRUGS (3)
  1. LEVOTHYROXINE. [Concomitant]
     Active Substance: LEVOTHYROXINE
     Dosage: 0.87MG, 1 TABLET DAILY
     Route: 048
  2. GENOTROPIN MQ [Suspect]
     Active Substance: SOMATROPIN
     Indication: BLOOD GROWTH HORMONE ABNORMAL
     Dosage: 2MG, ONCE A DAY, INJECTION ADMINISTERED ONCE A DAY USUALLY IN THE LEG, BELLY, OR ARM
     Dates: start: 2017
  3. LETROZOLE. [Concomitant]
     Active Substance: LETROZOLE
     Dosage: 1 DF, DAILY
     Route: 048

REACTIONS (1)
  - Pain in extremity [Unknown]
